FAERS Safety Report 8525598-3 (Version None)
Quarter: 2012Q3

REPORT INFORMATION
  Report Type: 
  Country: None (occurrence: None)
  Receive Date: 20120720
  Receipt Date: 20120716
  Transmission Date: 20120928
  Serious: Yes (Other)
  Sender: FDA-Public Use
  Company Number: GB-JNJFOC-20120708326

PATIENT
  Age: 56 Year
  Sex: Female

DRUGS (2)
  1. REMICADE [Suspect]
     Indication: RHEUMATOID ARTHRITIS
     Route: 042
     Dates: start: 20051215
  2. METHOTREXATE [Concomitant]

REACTIONS (3)
  - OVARIAN CANCER [None]
  - MALIGNANT PERITONEAL NEOPLASM [None]
  - METASTATIC NEOPLASM [None]
